FAERS Safety Report 8793354 (Version 2)
Quarter: 2012Q4

REPORT INFORMATION
  Report Type: 
  Country: BE (occurrence: BE)
  Receive Date: 20120917
  Receipt Date: 20120920
  Transmission Date: 20130627
  Serious: Yes (Other)
  Sender: FDA-Public Use
  Company Number: BE-ASTRAZENECA-2012SE70706

PATIENT
  Age: 67 Year
  Sex: Female
  Weight: 68 kg

DRUGS (3)
  1. CRESTOR [Suspect]
     Route: 048
     Dates: start: 20120501, end: 20120826
  2. NEXIAM [Concomitant]
     Indication: GASTRIC ULCER
     Route: 048
     Dates: start: 2004
  3. MIRAPEXIN [Concomitant]
     Indication: RESTLESS LEGS SYNDROME
     Route: 048
     Dates: start: 2008

REACTIONS (1)
  - Skin exfoliation [Recovered/Resolved]
